FAERS Safety Report 8712239 (Version 2)
Quarter: 2012Q4

REPORT INFORMATION
  Report Type: 
  Country: BE (occurrence: BE)
  Receive Date: 20120808
  Receipt Date: 20120906
  Transmission Date: 20130627
  Serious: Yes (Other)
  Sender: FDA-Public Use
  Company Number: BE-AMGEN-BELSP2012048326

PATIENT
  Age: 48 Year
  Sex: Female

DRUGS (4)
  1. ENBREL [Suspect]
     Indication: PRODUCT USED FOR UNKNOWN INDICATION
     Dosage: 50 mg, weekly
     Route: 058
     Dates: start: 20120601
  2. ENBREL [Suspect]
     Dosage: UNK
     Dates: start: 20120817
  3. ZANTAC [Concomitant]
     Dosage: UNK
  4. FELDENE [Concomitant]
     Dosage: UNK

REACTIONS (3)
  - Sinusitis [Not Recovered/Not Resolved]
  - Bronchitis [Not Recovered/Not Resolved]
  - Drug effect incomplete [Unknown]
